FAERS Safety Report 12569227 (Version 2)
Quarter: 2016Q3

REPORT INFORMATION
  Report Type: Report from Study
  Country: DE (occurrence: DE)
  Receive Date: 20160719
  Receipt Date: 20160725
  Transmission Date: 20161109
  Serious: Yes (Hospitalization, Other)
  Sender: FDA-Public Use
  Company Number: PHHY2016DE096577

PATIENT
  Age: 68 Year
  Sex: Male
  Weight: 77 kg

DRUGS (2)
  1. BERODUAL INHALATION SOLUTION [Concomitant]
     Indication: CHRONIC OBSTRUCTIVE PULMONARY DISEASE
     Dosage: 1X1-2 DF, PRN
     Route: 065
     Dates: start: 20140210
  2. SEEBRI BREEZHALER [Suspect]
     Active Substance: GLYCOPYRROLATE
     Indication: CHRONIC OBSTRUCTIVE PULMONARY DISEASE
     Dosage: 50 UG (44 UG), 1 DF, QD
     Route: 055
     Dates: start: 20140210

REACTIONS (8)
  - Chest discomfort [Recovering/Resolving]
  - Prolonged expiration [Not Recovered/Not Resolved]
  - Wheezing [Recovering/Resolving]
  - Chest pain [Recovering/Resolving]
  - Dyspnoea at rest [Recovering/Resolving]
  - Grunting [Recovering/Resolving]
  - Chronic obstructive pulmonary disease [Recovering/Resolving]
  - Forced expiratory volume decreased [Recovering/Resolving]

NARRATIVE: CASE EVENT DATE: 201501
